FAERS Safety Report 25272172 (Version 1)
Quarter: 2025Q2

REPORT INFORMATION
  Report Type: Spontaneous
  Country: US (occurrence: US)
  Receive Date: 20250506
  Receipt Date: 20250506
  Transmission Date: 20250716
  Serious: No
  Sender: AMGEN
  Company Number: US-AMGEN-USASP2025086887

PATIENT
  Age: 60 Year
  Sex: Female

DRUGS (7)
  1. RITUXIMAB [Suspect]
     Active Substance: RITUXIMAB
     Indication: Autoimmune haemolytic anaemia
     Dosage: UNK, QWK
     Route: 065
  2. PREDNISONE [Suspect]
     Active Substance: PREDNISONE
     Indication: Autoimmune haemolytic anaemia
     Route: 065
  3. PREDNISONE [Suspect]
     Active Substance: PREDNISONE
     Route: 065
  4. CARBOPLATIN [Concomitant]
     Active Substance: CARBOPLATIN
  5. PACLITAXEL [Concomitant]
     Active Substance: PACLITAXEL
  6. DOSTARLIMAB [Concomitant]
     Active Substance: DOSTARLIMAB
  7. DOSTARLIMAB [Concomitant]
     Active Substance: DOSTARLIMAB

REACTIONS (3)
  - Therapeutic product effect incomplete [Unknown]
  - Drug effective for unapproved indication [Unknown]
  - Off label use [Unknown]
